FAERS Safety Report 11884660 (Version 2)
Quarter: 2016Q1

REPORT INFORMATION
  Report Type: Spontaneous
  Country: ES (occurrence: ES)
  Receive Date: 20160104
  Receipt Date: 20160112
  Transmission Date: 20160526
  Serious: Yes (Other)
  Sender: FDA-Public Use
  Company Number: ES-UCBSA-2015026710

PATIENT
  Sex: Female

DRUGS (2)
  1. CIMZIA [Suspect]
     Active Substance: CERTOLIZUMAB PEGOL
     Dosage: 200 MG, EV 2 WEEKS(QOW)
     Route: 058
     Dates: start: 20151115
  2. CIMZIA [Suspect]
     Active Substance: CERTOLIZUMAB PEGOL
     Indication: ANKYLOSING SPONDYLITIS
     Dosage: 600 MG, EV 15 DAYS
     Dates: start: 20150615, end: 20150715

REACTIONS (6)
  - Off label use [Unknown]
  - Injection site pain [Not Recovered/Not Resolved]
  - Intentional overdose [Unknown]
  - Injection site reaction [Not Recovered/Not Resolved]
  - Pregnancy [Unknown]
  - Abortion [Recovered/Resolved]

NARRATIVE: CASE EVENT DATE: 20150615
